FAERS Safety Report 15154309 (Version 1)
Quarter: 2018Q3

REPORT INFORMATION
  Report Type: Spontaneous
  Country: FR (occurrence: FR)
  Receive Date: 20180717
  Receipt Date: 20180717
  Transmission Date: 20181010
  Serious: Yes (Congenital Anomaly)
  Sender: FDA-Public Use
  Company Number: FR-PFIZER INC-2018279322

PATIENT
  Sex: Male
  Weight: 3 kg

DRUGS (5)
  1. NOVORAPID [Suspect]
     Active Substance: INSULIN ASPART
     Route: 064
     Dates: start: 201405, end: 20140907
  2. PARACETAMOL MYLAN [Suspect]
     Active Substance: ACETAMINOPHEN
     Route: 064
     Dates: start: 20140814
  3. TRINORDIOL [Suspect]
     Active Substance: ETHINYL ESTRADIOL\LEVONORGESTREL
     Dosage: 1 DF, 1X/DAY
     Route: 064
     Dates: end: 2014
  4. DESLORATADINE MYLAN [Suspect]
     Active Substance: DESLORATADINE
     Route: 064
     Dates: start: 20140814
  5. UMULINE [Suspect]
     Active Substance: INSULIN HUMAN
     Route: 064
     Dates: start: 201405, end: 20140907

REACTIONS (6)
  - Maternal drugs affecting foetus [None]
  - Maternal exposure during pregnancy [Not Recovered/Not Resolved]
  - Haemangioma [Not Recovered/Not Resolved]
  - Ventricular septal defect [Recovered/Resolved]
  - Spermatic cord disorder [Not Recovered/Not Resolved]
  - Single umbilical artery [Recovered/Resolved]

NARRATIVE: CASE EVENT DATE: 20140820
